FAERS Safety Report 24371942 (Version 3)
Quarter: 2024Q4

REPORT INFORMATION
  Report Type: Spontaneous
  Country: GB (occurrence: GB)
  Receive Date: 20240927
  Receipt Date: 20241031
  Transmission Date: 20250115
  Serious: Yes (Other)
  Sender: ALIMERA
  Company Number: GB-ALIMERA SCIENCES INC.-GB-A16013-24-000563

PATIENT
  Age: 81 Year
  Sex: Male

DRUGS (2)
  1. ILUVIEN [Suspect]
     Active Substance: FLUOCINOLONE ACETONIDE
     Indication: Retinitis
     Dosage: 0.25 MICROGRAM, QD - LEFT EYE
     Route: 031
     Dates: start: 20231011, end: 20231017
  2. ILUVIEN [Suspect]
     Active Substance: FLUOCINOLONE ACETONIDE
     Indication: Retinal vasculitis

REACTIONS (4)
  - Cytomegalovirus chorioretinitis [Recovered/Resolved]
  - Retinal occlusive vasculitis [Recovered/Resolved]
  - Retinal laser coagulation [Recovered/Resolved]
  - Medical device removal [Recovered/Resolved]

NARRATIVE: CASE EVENT DATE: 20231011
